FAERS Safety Report 7349166-4 (Version None)
Quarter: 2011Q1

REPORT INFORMATION
  Report Type: 
  Country: None (occurrence: None)
  Receive Date: 20110304
  Receipt Date: 20110218
  Transmission Date: 20110831
  Serious: Yes (Other)
  Sender: FDA-Public Use
  Company Number: LEO-2011-00186

PATIENT
  Age: 60 Year
  Sex: Female

DRUGS (4)
  1. INNOHEP [Suspect]
     Indication: FEMUR FRACTURE
     Dosage: 1 DOSAGE FORMS (4500 IU), SUBCUTANEOUS
     Route: 058
  2. INNOHEP [Suspect]
     Indication: THROMBOSIS PROPHYLAXIS
     Dosage: 1 DOSAGE FORMS (4500 IU), SUBCUTANEOUS
     Route: 058
  3. DOLIPRAN (PARACETAMOL) (1 GRAM) [Suspect]
     Indication: PAIN
     Dosage: 2 G/DAY AT MAXIMUM (2 IN 1 D)
  4. VALSARTAN AND HYDROCHLOROTHIAZIDE [Concomitant]

REACTIONS (3)
  - ASPARTATE AMINOTRANSFERASE INCREASED [None]
  - GAMMA-GLUTAMYLTRANSFERASE INCREASED [None]
  - ALANINE AMINOTRANSFERASE INCREASED [None]
